FAERS Safety Report 8781541 (Version 2)
Quarter: 2013Q1

REPORT INFORMATION
  Report Type: Spontaneous
  Country: US (occurrence: US)
  Receive Date: 20120913
  Receipt Date: 20130113
  Transmission Date: 20140127
  Serious: No
  Sender: FDA-Public Use
  Company Number: US-009507513-1209USA001723

PATIENT
  Age: 19 Year
  Sex: Female
  Weight: 54.42 kg

DRUGS (3)
  1. IMPLANON [Suspect]
     Indication: CONTRACEPTION
     Dosage: 1 ROD EVERY 3 YEARS
     Route: 059
     Dates: start: 20110812
  2. IMPLANON [Suspect]
     Indication: MENSTRUATION IRREGULAR
  3. IBUPROFEN [Concomitant]
     Indication: HEADACHE

REACTIONS (2)
  - Menstruation irregular [Unknown]
  - Headache [Unknown]
